FAERS Safety Report 9787597 (Version 1)
Quarter: 2013Q4

REPORT INFORMATION
  Report Type: Spontaneous
  Country: US (occurrence: None)
  Receive Date: 20131226
  Receipt Date: 20131226
  Transmission Date: 20140711
  Serious: Yes (Hospitalization)
  Sender: FDA-Public Use
  Company Number: FK201305456

PATIENT
  Age: 44 Year
  Sex: Female

DRUGS (7)
  1. DOXORUBICIN [Suspect]
     Indication: PLASMABLASTIC LYMPHOMA
     Dosage: 8 CYCLES, EVERY 3 WEEKS
  2. ETOPOSIDE [Suspect]
     Indication: PLASMABLASTIC LYMPHOMA
     Dosage: 3 CYCLES
  3. IFOSFAMIDE [Suspect]
     Indication: PLASMABLASTIC LYMPHOMA
     Dosage: 3 CYCLES
  4. CARBOPLATIN [Suspect]
     Indication: PLASMABLASTIC LYMPHOMA
     Dosage: 3 CYCLES
  5. VINCRISTINE (VINCRISTINE) (VINCRISTINE) [Suspect]
     Indication: PLASMABLASTIC LYMPHOMA
     Dosage: 8 CYCLES, EVERY 3 WEEKS
  6. PREDNISONE (PREDNISONE) (PREDNISONE) [Suspect]
     Indication: PLASMABLASTIC LYMPHOMA
     Dosage: 8 CYCLES, EVERY 3 WEEKS
  7. CYCLOPHOSPHAMIDE (CYCLOPHOSPHAMIDE) (CYCLOPHOSPHAMIDE) [Suspect]
     Indication: PLASMABLASTIC LYMPHOMA
     Dosage: 8 CYCLES, EVERY 3 WEEKS

REACTIONS (5)
  - Diarrhoea [None]
  - Anaemia [None]
  - Neutropenia [None]
  - Haematotoxicity [None]
  - Nephropathy toxic [None]
